FAERS Safety Report 9702324 (Version 3)
Quarter: 2013Q4

REPORT INFORMATION
  Report Type: Spontaneous
  Country: FR (occurrence: FR)
  Receive Date: 20131121
  Receipt Date: 20131211
  Transmission Date: 20140711
  Serious: Yes (Life-Threatening, Hospitalization)
  Sender: FDA-Public Use
  Company Number: PHHY2013FR123219

PATIENT
  Age: 46 Year
  Sex: Male
  Weight: 110 kg

DRUGS (6)
  1. ATORVASTATIN SANDOZ [Suspect]
     Indication: MYOCARDIAL INFARCTION
     Route: 065
     Dates: start: 20131018
  2. TAHOR [Suspect]
  3. TENORMINE [Suspect]
  4. ATENOLOL SANDOZ [Concomitant]
     Indication: PRODUCT USED FOR UNKNOWN INDICATION
     Route: 065
  5. EZETROL [Concomitant]
     Indication: PRODUCT USED FOR UNKNOWN INDICATION
     Route: 065
  6. DUOPLAVIN [Concomitant]
     Indication: PRODUCT USED FOR UNKNOWN INDICATION
     Route: 065

REACTIONS (3)
  - Dyspepsia [Recovered/Resolved]
  - Infarction [Unknown]
  - Malaise [Unknown]
